FAERS Safety Report 5290292-1 (Version None)
Quarter: 2007Q2

REPORT INFORMATION
  Report Type: 
  Country: None (occurrence: None)
  Receive Date: 20070409
  Receipt Date: 20070329
  Transmission Date: 20071010
  Serious: Yes (Hospitalization, Other)
  Sender: FDA-Public Use
  Company Number: PHHO2007JP05803

PATIENT
  Age: 32 Year
  Sex: Female
  Weight: 78 kg

DRUGS (7)
  1. SIMULECT [Suspect]
     Indication: RENAL TRANSPLANT
     Dosage: 20 MG, DAY 0
     Route: 042
     Dates: start: 20060516, end: 20060516
  2. SIMULECT [Suspect]
     Dosage: 20 MG, DAY 4
     Route: 042
     Dates: start: 20060520, end: 20060520
  3. NEORAL [Suspect]
     Indication: RENAL TRANSPLANT
     Dosage: 500 MG, BID
     Route: 048
     Dates: start: 20060514, end: 20060925
  4. SANDIMMUNE [Concomitant]
     Dosage: 170 MG/DAILY
     Route: 042
     Dates: start: 20060516, end: 20060516
  5. PREDONINE [Concomitant]
     Indication: RENAL TRANSPLANT
     Dosage: 50 MG/DAILY
     Route: 042
  6. MIZORIBINE [Concomitant]
     Indication: RENAL TRANSPLANT
     Dates: start: 20060517
  7. PREDNISOLONE [Concomitant]
     Indication: RENAL TRANSPLANT
     Dates: start: 20060517

REACTIONS (6)
  - BLOOD CREATININE INCREASED [None]
  - BLOOD UREA INCREASED [None]
  - C-REACTIVE PROTEIN INCREASED [None]
  - DRUG INEFFECTIVE [None]
  - KIDNEY TRANSPLANT REJECTION [None]
  - MALABSORPTION [None]
